FAERS Safety Report 4337556-3 (Version None)
Quarter: 2004Q2

REPORT INFORMATION
  Report Type: 
  Country: None (occurrence: None)
  Receive Date: 20040412
  Receipt Date: 20040412
  Transmission Date: 20050107
  Serious: Yes (Life-Threatening, Hospitalization)
  Sender: FDA-Public Use
  Company Number: None

PATIENT
  Age: 64 Year
  Sex: Female
  Weight: 50 kg

DRUGS (10)
  1. BEVACIZUMAB 400MG - 25MG/ ML- GENENTECH [Suspect]
     Indication: COLON CANCER STAGE IV
     Dosage: 230 MG ONE TIME INTRAVENOUS
     Route: 042
     Dates: start: 20040402, end: 20040402
  2. OXALIPLATIN [Concomitant]
  3. FLUOROURACIL [Concomitant]
  4. DEXAMETHASONE [Concomitant]
  5. LEUCOVORIN CALCIUM [Concomitant]
  6. ALPRAZOLAM [Concomitant]
  7. OXYCODONE [Concomitant]
  8. ONDANSETRON HCL [Concomitant]
  9. PROCHLORPERAZINE [Concomitant]
  10. FENTANYL [Concomitant]

REACTIONS (8)
  - ABDOMINAL PAIN [None]
  - BACK PAIN [None]
  - CELLULITIS [None]
  - FATIGUE [None]
  - MASS [None]
  - PERITONEAL DISORDER [None]
  - RECTAL HAEMORRHAGE [None]
  - SMALL INTESTINAL PERFORATION [None]
